FAERS Safety Report 16606482 (Version 2)
Quarter: 2019Q3

REPORT INFORMATION
  Report Type: Spontaneous
  Country: JP (occurrence: JP)
  Receive Date: 20190722
  Receipt Date: 20190801
  Transmission Date: 20191004
  Serious: Yes (Death, Other)
  Sender: FDA-Public Use
  Company Number: JP-ROCHE-2335545

PATIENT
  Sex: Female
  Weight: 46 kg

DRUGS (11)
  1. AVASTIN [Suspect]
     Active Substance: BEVACIZUMAB
     Route: 041
     Dates: start: 20161213, end: 20180402
  2. TRAZENTA [Concomitant]
     Active Substance: LINAGLIPTIN
     Dosage: DOSAGE IS UNCERTAIN.
     Route: 065
  3. AVASTIN [Suspect]
     Active Substance: BEVACIZUMAB
     Indication: COLON CANCER
     Route: 041
     Dates: start: 20140613, end: 20151119
  4. METFORMIN HYDROCHLORIDE. [Concomitant]
     Active Substance: METFORMIN HYDROCHLORIDE
     Dosage: DOSAGE IS UNCERTAIN.
     Route: 065
  5. GIMERACIL;OTERACIL POTASSIUM;TEGAFUR [Concomitant]
     Active Substance: GIMERACIL\OTERACIL\TEGAFUR
     Indication: COLON CANCER
     Dosage: DOSAGE IS UNCERTAIN.
     Route: 048
     Dates: start: 20140613, end: 20151119
  6. SPIRONOLACTONE. [Concomitant]
     Active Substance: SPIRONOLACTONE
     Dosage: DOSAGE IS UNCERTAIN.
     Route: 065
  7. GIMERACIL;OTERACIL POTASSIUM;TEGAFUR [Concomitant]
     Active Substance: GIMERACIL\OTERACIL\TEGAFUR
     Dosage: DOSAGE IS UNCERTAIN.
     Route: 048
     Dates: start: 20151211, end: 20161205
  8. OXALIPLATIN. [Concomitant]
     Active Substance: OXALIPLATIN
     Indication: COLON CANCER
     Dosage: DOSAGE IS UNCERTAIN.
     Route: 041
     Dates: start: 20151211, end: 20161205
  9. AVASTIN [Suspect]
     Active Substance: BEVACIZUMAB
     Route: 041
     Dates: start: 20151211, end: 20161205
  10. FUROSEMIDE. [Concomitant]
     Active Substance: FUROSEMIDE
     Dosage: DOSAGE IS UNCERTAIN.
     Route: 065
  11. GIMERACIL;OTERACIL POTASSIUM;TEGAFUR [Concomitant]
     Active Substance: GIMERACIL\OTERACIL\TEGAFUR
     Dosage: DOSAGE IS UNCERTAIN.
     Route: 048
     Dates: start: 20161213, end: 20180402

REACTIONS (2)
  - Stoma site hypergranulation [Unknown]
  - Disease progression [Fatal]
